FAERS Safety Report 7641043-4 (Version None)
Quarter: 2011Q3

REPORT INFORMATION
  Report Type: 
  Country: None (occurrence: None)
  Receive Date: 20110728
  Receipt Date: 20110719
  Transmission Date: 20111222
  Serious: Yes (Life-Threatening, Hospitalization, Other)
  Sender: FDA-Public Use
  Company Number: US-ASTELLAS-2011US004295

PATIENT
  Age: 62 Year
  Sex: Male

DRUGS (3)
  1. GEMCITABINE HYDROCHLORIDE [Suspect]
     Indication: PANCREATIC CARCINOMA METASTATIC
     Dosage: UNK MG, TOTAL DOSE
     Route: 042
     Dates: start: 20100323
  2. PANITUMUMAB [Suspect]
     Indication: PANCREATIC CARCINOMA METASTATIC
     Dosage: UNK MG, TOTAL DOSE
     Route: 042
     Dates: start: 20100323
  3. ERLOTINIB HYDROCHLORIDE [Suspect]
     Indication: PANCREATIC CARCINOMA METASTATIC
     Dosage: UNK MG, TOTAL DOSE
     Route: 048
     Dates: start: 20100323

REACTIONS (8)
  - PLATELET COUNT DECREASED [None]
  - WHITE BLOOD CELL COUNT INCREASED [None]
  - ANAEMIA [None]
  - DYSPNOEA [None]
  - ASCITES [None]
  - ERYTHEMA [None]
  - HAEMOGLOBIN DECREASED [None]
  - OEDEMA [None]
